FAERS Safety Report 25942060 (Version 1)
Quarter: 2025Q4

REPORT INFORMATION
  Report Type: Report from Study
  Country: US (occurrence: US)
  Receive Date: 20251020
  Receipt Date: 20251020
  Transmission Date: 20260118
  Serious: Yes (Hospitalization)
  Sender: ALEXION PHARMACEUTICALS
  Company Number: US-AstraZeneca-CH-00973980A

PATIENT
  Age: 46 Year
  Sex: Female

DRUGS (4)
  1. BENRALIZUMAB [Suspect]
     Active Substance: BENRALIZUMAB
     Indication: Asthma
     Dosage: 30 MILLIGRAM PER MILLILITRE, Q8W
     Dates: start: 20250121, end: 20250828
  2. BENRALIZUMAB [Suspect]
     Active Substance: BENRALIZUMAB
  3. DUPIXENT [Concomitant]
     Active Substance: DUPILUMAB
     Route: 065
  4. CORTICOSTEROID NOS [Concomitant]
     Active Substance: CORTICOSTEROID NOS
     Route: 065

REACTIONS (8)
  - Erythema [Unknown]
  - Infection [Unknown]
  - Skin irritation [Unknown]
  - Pruritus [Unknown]
  - Injection site reaction [Unknown]
  - Blister [Unknown]
  - Urticaria [Unknown]
  - Headache [Unknown]
